FAERS Safety Report 8587951-1 (Version None)
Quarter: 2012Q3

REPORT INFORMATION
  Report Type: 
  Country: None (occurrence: None)
  Receive Date: 20120813
  Receipt Date: 20120730
  Transmission Date: 20120928
  Serious: No
  Sender: FDA-Public Use
  Company Number: US-BIOGENIDEC-2012BI028487

PATIENT
  Age: 26 Year
  Sex: Male

DRUGS (5)
  1. AVONEX [Suspect]
     Route: 030
     Dates: start: 20120607, end: 20120607
  2. AVONEX [Suspect]
     Route: 030
     Dates: start: 20120621
  3. AVONEX [Suspect]
     Route: 030
     Dates: start: 20120531, end: 20120531
  4. AVONEX [Suspect]
     Indication: MULTIPLE SCLEROSIS
     Route: 030
     Dates: start: 20120523, end: 20120523
  5. AVONEX [Suspect]
     Route: 030
     Dates: start: 20120614, end: 20120614

REACTIONS (3)
  - INJECTION SITE PAIN [None]
  - UNDERDOSE [None]
  - INFLUENZA LIKE ILLNESS [None]
